FAERS Safety Report 13650761 (Version 1)
Quarter: 2017Q2

REPORT INFORMATION
  Report Type: Spontaneous
  Country: SE (occurrence: SE)
  Receive Date: 20170614
  Receipt Date: 20170614
  Transmission Date: 20170830
  Serious: Yes (Other)
  Sender: FDA-Public Use
  Company Number: SE-TEVA-777523ACC

PATIENT
  Age: 25 Year
  Sex: Female

DRUGS (2)
  1. METHYLPHENIDAT ACTAVIS 27 MG DEPOTTABLETT [Suspect]
     Active Substance: METHYLPHENIDATE HYDROCHLORIDE
     Indication: ATTENTION DEFICIT/HYPERACTIVITY DISORDER
     Dosage: 27 MILLIGRAM DAILY;
     Dates: start: 20170524
  2. CONCERTA [Concomitant]
     Active Substance: METHYLPHENIDATE HYDROCHLORIDE
     Indication: ATTENTION DEFICIT/HYPERACTIVITY DISORDER
     Dosage: 18 MILLIGRAM DAILY;
     Dates: start: 201607

REACTIONS (3)
  - Mood swings [Not Recovered/Not Resolved]
  - Product substitution issue [Not Recovered/Not Resolved]
  - Anxiety [Not Recovered/Not Resolved]

NARRATIVE: CASE EVENT DATE: 201705
